FAERS Safety Report 4515113-3 (Version None)
Quarter: 2004Q4

REPORT INFORMATION
  Report Type: 
  Country: None (occurrence: None)
  Receive Date: 20041129
  Receipt Date: 20041129
  Transmission Date: 20050328
  Serious: Yes (Life-Threatening, Hospitalization, Other)
  Sender: FDA-Public Use
  Company Number: None

PATIENT
  Sex: Male

DRUGS (1)
  1. TAXOL [Suspect]

REACTIONS (4)
  - DYSKINESIA [None]
  - FLUSHING [None]
  - RESPIRATORY RATE INCREASED [None]
  - SWOLLEN TONGUE [None]
